FAERS Safety Report 9068556 (Version 3)
Quarter: 2013Q2

REPORT INFORMATION
  Report Type: Spontaneous
  Country: GB (occurrence: GB)
  Receive Date: 20130206
  Receipt Date: 20130522
  Transmission Date: 20140414
  Serious: Yes (Hospitalization)
  Sender: FDA-Public Use
  Company Number: GB-ABBOTT-13P-167-1046196-00

PATIENT
  Age: 2 Year
  Sex: Female

DRUGS (3)
  1. SODIUM VALPROATE [Suspect]
     Indication: PRODUCT USED FOR UNKNOWN INDICATION
     Dosage: ONCE
     Route: 048
  2. MIDAZOLAM [Concomitant]
     Indication: SEDATION
  3. MORPHINE [Concomitant]
     Indication: SEDATION

REACTIONS (6)
  - Depressed level of consciousness [Recovered/Resolved]
  - Accidental overdose [Recovering/Resolving]
  - Coma scale abnormal [Unknown]
  - Electrocardiogram QT prolonged [Recovered/Resolved]
  - Hypocalcaemia [Recovered/Resolved]
  - Confusional state [Recovered/Resolved]
